FAERS Safety Report 17231326 (Version 4)
Quarter: 2020Q4

REPORT INFORMATION
  Report Type: Spontaneous
  Country: US (occurrence: US)
  Receive Date: 20200103
  Receipt Date: 20201012
  Transmission Date: 20210113
  Serious: Yes (Hospitalization)
  Sender: FDA-Public Use
  Company Number: US-PFIZER INC-2019562618

PATIENT
  Age: 67 Year
  Sex: Female

DRUGS (1)
  1. XELJANZ [Suspect]
     Active Substance: TOFACITINIB CITRATE
     Dosage: 5 MG, UNK
     Dates: start: 201912

REACTIONS (15)
  - Pruritus [Unknown]
  - Headache [Not Recovered/Not Resolved]
  - Pneumonia [Unknown]
  - Nodule [Unknown]
  - Pain [Unknown]
  - Contusion [Unknown]
  - Decreased appetite [Unknown]
  - Pollakiuria [Unknown]
  - Weight increased [Unknown]
  - Condition aggravated [Unknown]
  - Renal pain [Unknown]
  - Drug ineffective [Unknown]
  - Swelling [Unknown]
  - Vision blurred [Unknown]
  - Nausea [Not Recovered/Not Resolved]

NARRATIVE: CASE EVENT DATE: 2020
